FAERS Safety Report 23545832 (Version 1)
Quarter: 2024Q1

REPORT INFORMATION
  Report Type: Spontaneous
  Country: US (occurrence: None)
  Receive Date: 20240219
  Receipt Date: 20240219
  Transmission Date: 20240409
  Serious: Yes (Death)
  Sender: FDA-Public Use
  Company Number: None

PATIENT
  Age: 79 Year
  Sex: Female

DRUGS (1)
  1. ROCALTROL [Suspect]
     Active Substance: CALCITRIOL
     Dosage: 0.25MCG ONCE DAILY
     Dates: start: 20240126

REACTIONS (1)
  - Death [None]
